FAERS Safety Report 14525287 (Version 1)
Quarter: 2018Q1

REPORT INFORMATION
  Report Type: Report from Study
  Country: CA (occurrence: CA)
  Receive Date: 20180213
  Receipt Date: 20180213
  Transmission Date: 20180509
  Serious: Yes (Other)
  Sender: FDA-Public Use
  Company Number: CA-TEVA-2018-CA-857777

PATIENT
  Age: 32 Year
  Sex: Female

DRUGS (2)
  1. COPAXONE [Suspect]
     Active Substance: GLATIRAMER ACETATE
     Indication: MULTIPLE SCLEROSIS
     Route: 058
     Dates: start: 20170814, end: 20171229
  2. VITAMIN D [Concomitant]
     Active Substance: CHOLECALCIFEROL

REACTIONS (8)
  - Arrhythmia [Unknown]
  - Erythema [Unknown]
  - Chest pain [Unknown]
  - Poisoning [Unknown]
  - Dyspnoea [Unknown]
  - Fatigue [Unknown]
  - Abdominal pain upper [Unknown]
  - Lhermitte^s sign [Recovered/Resolved]

NARRATIVE: CASE EVENT DATE: 20171229
